FAERS Safety Report 16272513 (Version 1)
Quarter: 2019Q2

REPORT INFORMATION
  Report Type: Spontaneous
  Country: US (occurrence: US)
  Receive Date: 20190506
  Receipt Date: 20190506
  Transmission Date: 20190711
  Serious: No
  Sender: FDA-Public Use
  Company Number: US-CIPLA LTD.-2018US23447

PATIENT

DRUGS (4)
  1. TOPIRAMATE. [Suspect]
     Active Substance: TOPIRAMATE
     Indication: PAIN IN EXTREMITY
     Dosage: 50 MG, BID, 2 IN THE MORNING AND 2 IN THE NIGHT 25MG EACH (4 TABLETS PER DAY)
     Route: 048
     Dates: start: 20181119
  2. TRIAMTERENE AND HYDROCHLOROTHIAZIDE [Concomitant]
     Active Substance: HYDROCHLOROTHIAZIDE\TRIAMTERENE
     Indication: MENIERE^S DISEASE
     Dosage: 37.25 MG, UNK, FOR 10 YEARS
     Route: 065
     Dates: start: 2008, end: 20181223
  3. TOPIRAMATE. [Suspect]
     Active Substance: TOPIRAMATE
     Indication: ARTHRALGIA
     Dosage: UNK
     Route: 065
     Dates: start: 201809
  4. LEVOTHYROXINE. [Concomitant]
     Active Substance: LEVOTHYROXINE
     Indication: THYROID DISORDER
     Dosage: 150 MCG, SINCE DECADE
     Route: 065

REACTIONS (2)
  - Product prescribing error [Unknown]
  - Tinnitus [Not Recovered/Not Resolved]

NARRATIVE: CASE EVENT DATE: 2018
